FAERS Safety Report 4341275-7 (Version None)
Quarter: 2004Q1

REPORT INFORMATION
  Report Type: 
  Country: None (occurrence: None)
  Receive Date: 20040329
  Receipt Date: 20031204
  Transmission Date: 20041129
  Serious: No
  Sender: FDA-Public Use
  Company Number: 03P-163-0243676-00

PATIENT
  Age: 48 Year
  Sex: Male
  Weight: 69.4003 kg

DRUGS (6)
  1. HUMIRA [Suspect]
     Indication: RHEUMATOID ARTHRITIS
     Dosage: 40 MG,1 IN 1 WK, SUBCUTANEOUS
     Route: 058
     Dates: start: 20031113
  2. METHOTREXATE SODIUM [Concomitant]
  3. ARTHROTEC [Concomitant]
  4. PLAQUINEL [Concomitant]
  5. ATENOLOL [Concomitant]
  6. FOLIC ACID [Concomitant]

REACTIONS (1)
  - INJECTION SITE STINGING [None]
